FAERS Safety Report 16516401 (Version 1)
Quarter: 2019Q3

REPORT INFORMATION
  Report Type: Spontaneous
  Country: US (occurrence: US)
  Receive Date: 20190702
  Receipt Date: 20190702
  Transmission Date: 20191004
  Serious: No
  Sender: FDA-Public Use
  Company Number: US-PFM-2018-13929

PATIENT

DRUGS (2)
  1. HEMANGEOL [Suspect]
     Active Substance: PROPRANOLOL HYDROCHLORIDE
     Indication: PRODUCT USED FOR UNKNOWN INDICATION
     Dosage: 1.5 ML, BID (2/DAY) EVERY 10-12 WITH FORMULA
     Route: 048
     Dates: start: 201809
  2. HEMANGEOL [Suspect]
     Active Substance: PROPRANOLOL HYDROCHLORIDE
     Dosage: 1.5 ML, QD (1/DAY)
     Route: 048
     Dates: start: 20181205

REACTIONS (4)
  - Inappropriate schedule of product administration [Unknown]
  - Blood glucose decreased [Unknown]
  - Off label use [Unknown]
  - Sleep disorder [Unknown]
